FAERS Safety Report 5258840-5 (Version None)
Quarter: 2007Q1

REPORT INFORMATION
  Report Type: 
  Country: None (occurrence: None)
  Receive Date: 20070306
  Receipt Date: 20070306
  Transmission Date: 20070707
  Serious: Yes (Hospitalization)
  Sender: FDA-Public Use
  Company Number: None

PATIENT
  Age: 65 Year
  Sex: Female

DRUGS (1)
  1. PHENELZINE [Suspect]
     Indication: DEPRESSION
     Dosage: 15 MG TID PO
     Route: 048
     Dates: start: 20061028, end: 20061031

REACTIONS (2)
  - HYPERTENSION [None]
  - SYNCOPE [None]
